FAERS Safety Report 8772726 (Version 2)
Quarter: 2013Q1

REPORT INFORMATION
  Report Type: Report from Study
  Country: BR (occurrence: BR)
  Receive Date: 20120907
  Receipt Date: 20130206
  Transmission Date: 20140127
  Serious: Yes (Hospitalization)
  Sender: FDA-Public Use
  Company Number: BR-ROCHE-1116040

PATIENT
  Age: 32 Year
  Sex: Female
  Weight: 53 kg

DRUGS (16)
  1. RITUXIMAB [Suspect]
     Indication: SYSTEMIC LUPUS ERYTHEMATOSUS
     Route: 042
     Dates: start: 2010
  2. RITUXIMAB [Suspect]
     Dosage: FIRST CYCLE OF INFUSION
     Route: 042
     Dates: start: 20110215
  3. RITUXIMAB [Suspect]
     Dosage: 2ND CYCLE OF INFUSION
     Route: 042
     Dates: start: 20110725
  4. RITUXIMAB [Suspect]
     Dosage: 2ND CYCLE OF INFUSION
     Route: 042
     Dates: start: 20110808
  5. RITUXIMAB [Suspect]
     Dosage: 3RD CYCLE OF INFUSION
     Route: 042
     Dates: start: 20120816
  6. RITUXIMAB [Suspect]
     Dosage: 3RD CYCLE OF INFUSION
     Route: 042
     Dates: start: 20120830
  7. RITUXIMAB [Suspect]
     Dosage: FIRST CYCLE OF INFUSION
     Route: 042
     Dates: start: 20110201
  8. CHLOROQUINE [Concomitant]
  9. MYCOPHENOLATE MOFETIL [Concomitant]
     Indication: LUPUS NEPHRITIS
     Route: 048
  10. PURAN T4 [Concomitant]
  11. SIMVASTATIN [Concomitant]
  12. MONOCORDIL [Concomitant]
  13. ATENSINA [Concomitant]
     Indication: HYPERTENSION
     Route: 048
  14. PREDNISONE [Concomitant]
     Indication: SYSTEMIC LUPUS ERYTHEMATOSUS
     Route: 048
  15. HYDROXYCHLOROQUINE [Concomitant]
     Indication: SYSTEMIC LUPUS ERYTHEMATOSUS
     Route: 048
  16. FUROSEMIDE [Concomitant]
     Indication: HYPERTENSION
     Route: 048

REACTIONS (6)
  - Diarrhoea [Not Recovered/Not Resolved]
  - Vomiting [Not Recovered/Not Resolved]
  - Convulsion [Not Recovered/Not Resolved]
  - Headache [Unknown]
  - Insomnia [Unknown]
  - Peritonitis bacterial [Recovered/Resolved]
